FAERS Safety Report 10180489 (Version 1)
Quarter: 2014Q2

REPORT INFORMATION
  Report Type: Spontaneous
  Country: US (occurrence: US)
  Receive Date: 20140519
  Receipt Date: 20140519
  Transmission Date: 20141212
  Serious: No
  Sender: FDA-Public Use
  Company Number: US-AMGEN INC.-USASP2014002594

PATIENT
  Age: 90 Year
  Sex: Female

DRUGS (3)
  1. PROLIA [Suspect]
     Indication: OSTEOPOROSIS POSTMENOPAUSAL
     Dosage: UNK
     Route: 065
     Dates: start: 20131230
  2. LEXAPRO [Concomitant]
     Dosage: 10 MG, UNK
  3. FISH OIL [Concomitant]

REACTIONS (3)
  - Diarrhoea [Unknown]
  - Constipation [Unknown]
  - Rash [Unknown]
